FAERS Safety Report 15632502 (Version 1)
Quarter: 2018Q4

REPORT INFORMATION
  Report Type: Spontaneous
  Country: US (occurrence: US)
  Receive Date: 20181112
  Receipt Date: 20181112
  Transmission Date: 20190205
  Serious: No
  Sender: FDA-Public Use
  Company Number: None

PATIENT
  Age: 74 Year
  Sex: Male
  Weight: 96.62 kg

DRUGS (6)
  1. ATORVASTATIN [Concomitant]
     Active Substance: ATORVASTATIN
  2. FLAX SEED [Concomitant]
     Active Substance: FLAX SEED
  3. DOCUSATE [Concomitant]
     Active Substance: DOCUSATE
  4. ERLEADA [Suspect]
     Active Substance: APALUTAMIDE
     Indication: PROSTATE CANCER
     Route: 048
     Dates: start: 20181017
  5. BICALUTAMIDE. [Concomitant]
     Active Substance: BICALUTAMIDE
  6. ELIGARD [Concomitant]
     Active Substance: LEUPROLIDE ACETATE

REACTIONS (1)
  - Hot flush [None]
